FAERS Safety Report 8524769-X (Version None)
Quarter: 2012Q3

REPORT INFORMATION
  Report Type: 
  Country: None (occurrence: None)
  Receive Date: 20120720
  Receipt Date: 20120710
  Transmission Date: 20120928
  Serious: Yes (Hospitalization, Disabling, Other)
  Sender: FDA-Public Use
  Company Number: US-MERCK-1203USA03319

PATIENT

DRUGS (7)
  1. FOSAMAX [Suspect]
     Dosage: 70 MG, UNK
     Route: 048
     Dates: start: 20081126
  2. FOSAMAX PLUS D [Suspect]
     Indication: OSTEOPOROSIS
     Dosage: 70/2800 MG
     Route: 048
     Dates: start: 20070525, end: 20081101
  3. FOSAMAX [Suspect]
     Indication: OSTEOPOROSIS
     Dosage: 10 MG, QD
     Route: 048
     Dates: start: 19961001, end: 20061201
  4. CALCIUM (UNSPECIFIED) [Concomitant]
     Route: 048
  5. FOSAMAX [Suspect]
     Dosage: 70 MG, UNK
     Route: 048
     Dates: start: 20070126, end: 20070501
  6. FOSAMAX [Suspect]
     Dosage: 70 MG, UNK
     Route: 048
     Dates: start: 20090401, end: 20110601
  7. OS-CAL (CALCIUM CARBONATE) [Concomitant]
     Dosage: 1500 MG, QD
     Route: 048

REACTIONS (36)
  - BREAST CANCER [None]
  - LEUKOPENIA [None]
  - VIRAL INFECTION [None]
  - OPTIC ATROPHY [None]
  - SUPRAVENTRICULAR EXTRASYSTOLES [None]
  - CARDIAC FAILURE CONGESTIVE [None]
  - OSTEOARTHRITIS [None]
  - CATARACT [None]
  - FEMUR FRACTURE [None]
  - ARTHRALGIA [None]
  - VIRAL LABYRINTHITIS [None]
  - NEPHROLITHIASIS [None]
  - URINARY TRACT INFECTION [None]
  - MUSCULOSKELETAL PAIN [None]
  - COUGH [None]
  - GLAUCOMA [None]
  - DIVERTICULUM INTESTINAL [None]
  - OSTEOPOROSIS [None]
  - SCIATICA [None]
  - SEBORRHOEA [None]
  - FATIGUE [None]
  - GALLBLADDER DISORDER [None]
  - HYDRONEPHROSIS [None]
  - HYPERTENSION [None]
  - HYPOXIA [None]
  - LOWER GASTROINTESTINAL HAEMORRHAGE [None]
  - UPPER RESPIRATORY TRACT INFECTION [None]
  - IVTH NERVE PARESIS [None]
  - ANAEMIA [None]
  - NEURODERMATITIS [None]
  - HYPERCHOLESTEROLAEMIA [None]
  - STRESS FRACTURE [None]
  - LOW TURNOVER OSTEOPATHY [None]
  - ROTATOR CUFF SYNDROME [None]
  - PNEUMONIA [None]
  - MUSCLE SPASMS [None]
